FAERS Safety Report 9361289 (Version 2)
Quarter: 2014Q1

REPORT INFORMATION
  Report Type: Other
  Country: FR (occurrence: FR)
  Receive Date: 20130621
  Receipt Date: 20140207
  Transmission Date: 20141002
  Serious: Yes (Hospitalization, Other)
  Sender: FDA-Public Use
  Company Number: FR-PURDUE-DEU-2013-0011789

PATIENT
  Age: 42 Year
  Sex: Male
  Weight: 80 kg

DRUGS (6)
  1. NON-PMN BUPRENORPHINE [Suspect]
     Indication: PRODUCT USED FOR UNKNOWN INDICATION
     Dosage: 8 MG, DAILY
     Route: 045
  2. ALCOHOL [Concomitant]
     Dosage: UNK
     Dates: start: 2010
  3. ALCOHOL [Concomitant]
     Dosage: 100 G, DAILY
     Dates: start: 1993
  4. CANNABIS [Concomitant]
     Dosage: 4-5 CIGARETTES, WEEKLY
     Route: 055
  5. TOBACCO [Concomitant]
     Dosage: 10 CIGARETTES, DAILY
     Route: 055
  6. DIAZEPAM [Concomitant]
     Dosage: 10 MG, BID

REACTIONS (3)
  - Drug abuse [Unknown]
  - Hepatitis [Recovered/Resolved]
  - Renal failure [Recovered/Resolved]
